FAERS Safety Report 22909748 (Version 4)
Quarter: 2024Q3

REPORT INFORMATION
  Report Type: Spontaneous
  Country: US (occurrence: US)
  Receive Date: 20230906
  Receipt Date: 20240930
  Transmission Date: 20241016
  Serious: Yes (Hospitalization)
  Sender: UCB
  Company Number: US-UCBSA-2023043731

PATIENT
  Age: 69 Year
  Sex: Female
  Weight: 122.45 kg

DRUGS (3)
  1. CIMZIA [Suspect]
     Active Substance: CERTOLIZUMAB PEGOL
     Indication: Rheumatoid arthritis
     Dosage: UNK
     Route: 058
  2. CIMZIA [Suspect]
     Active Substance: CERTOLIZUMAB PEGOL
     Dosage: 400 MILLIGRAM, EV 4 WEEKS
     Route: 058
     Dates: start: 202307
  3. OZEMPIC [Concomitant]
     Active Substance: SEMAGLUTIDE
     Indication: Product used for unknown indication
     Dosage: UNK

REACTIONS (5)
  - Abdominal pain upper [Unknown]
  - Nasopharyngitis [Unknown]
  - Pain [Unknown]
  - Walking aid user [Unknown]
  - Product availability issue [Unknown]

NARRATIVE: CASE EVENT DATE: 20230831
